FAERS Safety Report 4346888-4 (Version None)
Quarter: 2004Q1

REPORT INFORMATION
  Report Type: 
  Country: None (occurrence: None)
  Receive Date: 20040325
  Receipt Date: 20040203
  Transmission Date: 20041129
  Serious: No
  Sender: FDA-Public Use
  Company Number: USA040258344

PATIENT
  Age: 78 Year
  Sex: Female
  Weight: 36 kg

DRUGS (5)
  1. FORTEO [Suspect]
     Indication: OSTEOPOROSIS
     Dates: start: 20040101
  2. CALCIUM [Concomitant]
  3. VITAMIN D [Concomitant]
  4. NEURONTNI (GABAPENTIN) [Concomitant]
  5. ZOLOFT [Concomitant]

REACTIONS (5)
  - ANOREXIA [None]
  - CONSTIPATION [None]
  - FEELING ABNORMAL [None]
  - NAUSEA [None]
  - TREMOR [None]
